FAERS Safety Report 9578706 (Version 1)
Quarter: 2013Q4

REPORT INFORMATION
  Report Type: Spontaneous
  Country: US (occurrence: US)
  Receive Date: 20131001
  Receipt Date: 20131001
  Transmission Date: 20140711
  Serious: No
  Sender: FDA-Public Use
  Company Number: US-AMGEN-USASP2013014266

PATIENT
  Age: 51 Year
  Sex: Male
  Weight: 63.49 kg

DRUGS (5)
  1. ENBREL [Suspect]
     Indication: PRODUCT USED FOR UNKNOWN INDICATION
     Dosage: 25 MG, 2 TIMES/WK
     Route: 058
  2. FISH OIL [Concomitant]
     Dosage: UNK
  3. ASA [Concomitant]
     Dosage: 81 MG
  4. CHERATUSSIN [Concomitant]
     Dosage: UNK
  5. LEVOFLOXACIN [Concomitant]
     Dosage: 500 MG, UNK

REACTIONS (1)
  - Lower respiratory tract infection [Unknown]
